FAERS Safety Report 6909199-6 (Version None)
Quarter: 2010Q3

REPORT INFORMATION
  Report Type: 
  Country: None (occurrence: None)
  Receive Date: 20100805
  Receipt Date: 20100729
  Transmission Date: 20110219
  Serious: No
  Sender: FDA-Public Use
  Company Number: US-ROXANE LABORATORIES, INC.-2010-RO-00985RO

PATIENT
  Sex: Female

DRUGS (7)
  1. METHADONE HCL [Suspect]
     Indication: PAIN
     Dosage: 40 MG
     Dates: end: 20100721
  2. LYRICA [Concomitant]
     Dosage: 600 MG
  3. VALIUM [Concomitant]
     Indication: MUSCLE SPASMS
     Dosage: 40 MG
  4. VALIUM [Concomitant]
     Indication: ANXIETY
  5. TRAZODONE [Concomitant]
     Indication: SLEEP DISORDER
     Dosage: 100 MG
  6. POTASSIUM [Concomitant]
  7. VITAMIN TAB [Concomitant]

REACTIONS (11)
  - ASTHENIA [None]
  - BLISTER [None]
  - DRY SKIN [None]
  - DYSPNOEA [None]
  - FALL [None]
  - HYPERSENSITIVITY [None]
  - LACRIMATION INCREASED [None]
  - MALAISE [None]
  - PHARYNGEAL OEDEMA [None]
  - RHINORRHOEA [None]
  - SKIN EXFOLIATION [None]
